FAERS Safety Report 9053531 (Version 3)
Quarter: 2013Q2

REPORT INFORMATION
  Report Type: Spontaneous
  Country: RU (occurrence: RU)
  Receive Date: 20130208
  Receipt Date: 20130507
  Transmission Date: 20140414
  Serious: Yes (Other)
  Sender: FDA-Public Use
  Company Number: PHHY2013RU011634

PATIENT
  Sex: Female

DRUGS (1)
  1. MIACALCIC [Suspect]
     Dosage: UNK UKN, UNK
     Route: 045

REACTIONS (5)
  - Faecal incontinence [Unknown]
  - Spinal pain [Unknown]
  - Back pain [Unknown]
  - Headache [Unknown]
  - Gait disturbance [Unknown]
